FAERS Safety Report 14945232 (Version 2)
Quarter: 2018Q2

REPORT INFORMATION
  Report Type: Report from Study
  Country: US (occurrence: US)
  Receive Date: 20180529
  Receipt Date: 20180608
  Transmission Date: 20180711
  Serious: Yes (Hospitalization, Disabling)
  Sender: FDA-Public Use
  Company Number: US-ROCHE-2129537

PATIENT
  Age: 79 Year
  Sex: Male

DRUGS (7)
  1. VEMURAFENIB. [Suspect]
     Active Substance: VEMURAFENIB
     Route: 065
     Dates: start: 20161227, end: 20171024
  2. CETUXIMAB. [Suspect]
     Active Substance: CETUXIMAB
     Indication: COLORECTAL CANCER METASTATIC
     Route: 042
  3. SYNTHROID [Suspect]
     Active Substance: LEVOTHYROXINE SODIUM
     Indication: PRODUCT USED FOR UNKNOWN INDICATION
     Route: 065
  4. VEMURAFENIB. [Suspect]
     Active Substance: VEMURAFENIB
     Route: 065
     Dates: start: 20161227, end: 20171024
  5. VEMURAFENIB. [Suspect]
     Active Substance: VEMURAFENIB
     Indication: COLORECTAL CANCER
     Dosage: MOST RECENT DOSE PRIOR TO SAE 04/NOV/2017
     Route: 065
     Dates: start: 20161227
  6. IRINOTECAN [Suspect]
     Active Substance: IRINOTECAN
     Route: 065
  7. IRINOTECAN [Suspect]
     Active Substance: IRINOTECAN
     Indication: COLORECTAL CANCER
     Route: 065
     Dates: start: 20170613, end: 20171024

REACTIONS (5)
  - Mental status changes [Recovered/Resolved with Sequelae]
  - Confusional state [Recovered/Resolved]
  - Encephalopathy [Recovered/Resolved]
  - Metabolic encephalopathy [Recovered/Resolved with Sequelae]
  - Mental status changes [Recovered/Resolved]

NARRATIVE: CASE EVENT DATE: 20180325
